FAERS Safety Report 7304053-2 (Version None)
Quarter: 2011Q1

REPORT INFORMATION
  Report Type: 
  Country: None (occurrence: None)
  Receive Date: 20110221
  Receipt Date: 20110209
  Transmission Date: 20110831
  Serious: Yes (Hospitalization)
  Sender: FDA-Public Use
  Company Number: PHHY2010US84514

PATIENT
  Sex: Male
  Weight: 57.68 kg

DRUGS (2)
  1. EXJADE [Suspect]
     Dosage: 1250 MG, UNK
     Route: 048
     Dates: end: 20110204
  2. EXJADE [Suspect]
     Indication: MYELODYSPLASTIC SYNDROME
     Dosage: 1250 MG, UNK
     Route: 048
     Dates: start: 20101130, end: 20101206

REACTIONS (6)
  - DIARRHOEA [None]
  - NAUSEA [None]
  - VOMITING [None]
  - ANAEMIA [None]
  - DEHYDRATION [None]
  - ABDOMINAL PAIN UPPER [None]
